FAERS Safety Report 24305238 (Version 1)
Quarter: 2024Q3

REPORT INFORMATION
  Report Type: Spontaneous
  Country: US (occurrence: US)
  Receive Date: 20240911
  Receipt Date: 20240911
  Transmission Date: 20241017
  Serious: No
  Sender: AUROBINDO
  Company Number: US-AUROBINDO-AUR-APL-2024-027178

PATIENT
  Sex: Male
  Weight: 68.03 kg

DRUGS (1)
  1. ALPRAZOLAM [Suspect]
     Active Substance: ALPRAZOLAM
     Indication: Panic attack
     Dosage: 02 TIMES DAILY AS NEEDED
     Route: 065
     Dates: start: 20240323, end: 20240423

REACTIONS (3)
  - Panic attack [Unknown]
  - Drug screen negative [Unknown]
  - Drug ineffective [Unknown]
